FAERS Safety Report 5524189-6 (Version None)
Quarter: 2007Q4

REPORT INFORMATION
  Report Type: 
  Country: None (occurrence: None)
  Receive Date: 20071121
  Receipt Date: 20071115
  Transmission Date: 20080405
  Serious: Yes (Other)
  Sender: FDA-Public Use
  Company Number: US-PFIZER INC-2007047287

PATIENT
  Age: 88 Year
  Sex: Female

DRUGS (1)
  1. LIPITOR [Suspect]

REACTIONS (12)
  - ASTHENIA [None]
  - CORONARY ARTERY BYPASS [None]
  - DIABETES MELLITUS [None]
  - DYSSTASIA [None]
  - FATIGUE [None]
  - GAIT DISTURBANCE [None]
  - LUNG NEOPLASM MALIGNANT [None]
  - MACULAR DEGENERATION [None]
  - MUSCLE DISORDER [None]
  - MYALGIA [None]
  - PAIN [None]
  - VASCULAR OCCLUSION [None]
